FAERS Safety Report 21253129 (Version 2)
Quarter: 2022Q4

REPORT INFORMATION
  Report Type: Spontaneous
  Country: CN (occurrence: None)
  Receive Date: 20220825
  Receipt Date: 20221128
  Transmission Date: 20230113
  Serious: Yes (Other)
  Sender: FDA-Public Use
  Company Number: CN-ROCHE-3163752

PATIENT
  Age: 55 Year
  Sex: Male
  Weight: 52.5 kg

DRUGS (14)
  1. TECENTRIQ [Suspect]
     Active Substance: ATEZOLIZUMAB
     Indication: Hepatic cancer
     Dosage: ON 24/MAR/2022, 26/APR/2022, 19/MAY/2022, 14/JUN/2022 AND 07/JUL/2022, HE RECEIVED SUBSEQUENT DOSES
     Route: 065
  2. AVASTIN [Suspect]
     Active Substance: BEVACIZUMAB
     Indication: Hepatic cancer
     Dosage: ON 24/MAR/2022, 26/APR/2022, 19/MAY/2022, 14/JUN/2022 AND 07/JUL/2022, HE RECEIVED SUBSEQUENT DOSES
     Route: 065
  3. OXALIPLATIN [Concomitant]
     Active Substance: OXALIPLATIN
     Indication: Hepatic cancer
     Route: 065
     Dates: start: 20220324
  4. OXALIPLATIN [Concomitant]
     Active Substance: OXALIPLATIN
     Dosage: ON 14/JUN/2022, RECEIVED SUBSEQUENT DOSE OF OXALIPLATIN 193 MG
     Route: 065
     Dates: start: 20220426
  5. OXALIPLATIN [Concomitant]
     Active Substance: OXALIPLATIN
     Route: 065
     Dates: start: 20220519
  6. OXALIPLATIN [Concomitant]
     Active Substance: OXALIPLATIN
     Route: 065
     Dates: start: 20220707
  7. LEUCOVORIN CALCIUM [Concomitant]
     Active Substance: LEUCOVORIN CALCIUM
     Indication: Hepatic cancer
     Route: 065
     Dates: start: 20220324
  8. LEUCOVORIN CALCIUM [Concomitant]
     Active Substance: LEUCOVORIN CALCIUM
     Dosage: ON 14/JUN/2022, RECEIVED SUBSEQUENT DOSE OF CALCIUM FOLINATE 590 MG
     Route: 065
     Dates: start: 20220426
  9. LEUCOVORIN CALCIUM [Concomitant]
     Active Substance: LEUCOVORIN CALCIUM
     Route: 065
     Dates: start: 20220519
  10. LEUCOVORIN CALCIUM [Concomitant]
     Active Substance: LEUCOVORIN CALCIUM
     Route: 065
     Dates: start: 20220707
  11. FLUOROURACIL [Concomitant]
     Active Substance: FLUOROURACIL
     Indication: Hepatic cancer
     Dosage: BOLUS FOR 0.61G, PERFUSION (23 HOUR) 1.83 G
     Route: 065
     Dates: start: 20220324
  12. FLUOROURACIL [Concomitant]
     Active Substance: FLUOROURACIL
     Dosage: ON 14/JUN/2022, RECEIVED SUBSEQUENT DOSE OF FLUOROURACIL BOLUS FOR 0.59 G,  PERFUSION (23 HOUR) FOR
     Route: 065
     Dates: start: 20220426
  13. FLUOROURACIL [Concomitant]
     Active Substance: FLUOROURACIL
     Dosage: BOLUS FOR 0.6 G, PERFUSION (23 HOUR) FOR 1.8 G
     Route: 065
     Dates: start: 20220519
  14. FLUOROURACIL [Concomitant]
     Active Substance: FLUOROURACIL
     Dosage: BOLUS FOR 0.58 G, PERFUSION (23 HOUR) FOR 1.71 G
     Route: 065
     Dates: start: 20220707

REACTIONS (2)
  - Gastric ulcer [Recovered/Resolved]
  - Constipation [Recovered/Resolved]
